FAERS Safety Report 24885845 (Version 5)
Quarter: 2025Q3

REPORT INFORMATION
  Report Type: Spontaneous
  Country: CA (occurrence: CA)
  Receive Date: 20250125
  Receipt Date: 20250710
  Transmission Date: 20251020
  Serious: Yes (Other)
  Sender: CELLTRION
  Company Number: CA-CELLTRION INC.-2024CA028170

PATIENT

DRUGS (3)
  1. STEQEYMA [Suspect]
     Active Substance: USTEKINUMAB-STBA
     Indication: Crohn^s disease
     Dosage: 90 MG, EVERY 4 WEEKS (NOT STARTED, FIRST INJECTION AROUND NOV. 21, 2024)
     Route: 058
     Dates: start: 20241121
  2. STEQEYMA [Suspect]
     Active Substance: USTEKINUMAB-STBA
     Dosage: 900 MG Q 4 WEEK
     Route: 058
     Dates: start: 20241121
  3. STEQEYMA [Suspect]
     Active Substance: USTEKINUMAB-STBA
     Dosage: 90 MG Q4 WEEKS
     Route: 058
     Dates: start: 20241121

REACTIONS (5)
  - Crohn^s disease [Not Recovered/Not Resolved]
  - Diarrhoea [Not Recovered/Not Resolved]
  - Intentional product use issue [Not Recovered/Not Resolved]
  - Overdose [Not Recovered/Not Resolved]
  - Blood iron decreased [Unknown]

NARRATIVE: CASE EVENT DATE: 20241105
